FAERS Safety Report 8953572 (Version 2)
Quarter: 2013Q1

REPORT INFORMATION
  Report Type: Spontaneous
  Country: US (occurrence: US)
  Receive Date: 20121206
  Receipt Date: 20130117
  Transmission Date: 20140127
  Serious: No
  Sender: FDA-Public Use
  Company Number: US-PFIZER INC-2012304018

PATIENT
  Age: 82 Year
  Sex: Female

DRUGS (1)
  1. ALAVERT [Suspect]
     Indication: RHINORRHOEA
     Dosage: UNK, DAILY
     Route: 048
     Dates: start: 201211

REACTIONS (1)
  - Drug ineffective [Unknown]
